FAERS Safety Report 5823354-8 (Version None)
Quarter: 2008Q3

REPORT INFORMATION
  Report Type: 
  Country: None (occurrence: None)
  Receive Date: 20080725
  Receipt Date: 20080716
  Transmission Date: 20090109
  Serious: Yes (Other)
  Sender: FDA-Public Use
  Company Number: US-JNJFOC-20080704395

PATIENT
  Sex: Female
  Weight: 65.77 kg

DRUGS (6)
  1. REMICADE [Suspect]
     Indication: CROHN'S DISEASE
     Route: 042
  2. BENTYL [Concomitant]
     Indication: ABDOMINAL PAIN UPPER
  3. COMPAZINE [Concomitant]
     Indication: NAUSEA
  4. NORCO [Concomitant]
     Indication: PAIN
  5. ROBAXIN [Concomitant]
     Indication: MUSCLE RELAXANT THERAPY
  6. FIORICET [Concomitant]
     Indication: MIGRAINE

REACTIONS (1)
  - MALIGNANT MELANOMA [None]
